FAERS Safety Report 8066518-8 (Version None)
Quarter: 2012Q1

REPORT INFORMATION
  Report Type: 
  Country: None (occurrence: None)
  Receive Date: 20120124
  Receipt Date: 20120112
  Transmission Date: 20120608
  Serious: Yes (Hospitalization)
  Sender: FDA-Public Use
  Company Number: PHHY2012NL003170

PATIENT
  Sex: Female

DRUGS (7)
  1. ACETYLSALICYLIC ACID SRT [Concomitant]
     Dosage: 1 DF, UNK
     Dates: start: 20080101
  2. ACETAMINOPHEN W/ CODEINE [Concomitant]
     Dosage: 1 DF, UNK
     Dates: start: 20110101
  3. ALENDRONIC ACID [Concomitant]
     Dosage: 1 DF, UNK
  4. SIMVASTATIN [Concomitant]
     Dosage: 1 DF, UNK
     Dates: start: 20080101
  5. RASILEZ HCT [Suspect]
     Dosage: 1 DF, QD
     Dates: start: 20111129, end: 20120104
  6. METOPROLOL SUCCINATE [Concomitant]
     Dosage: 1 DF, UNK
     Dates: start: 20080101
  7. PANTOPRAZOLE [Concomitant]
     Dosage: 1 DF, UNK
     Dates: start: 20070101

REACTIONS (3)
  - RESPIRATORY TRACT INFECTION [None]
  - INAPPROPRIATE ANTIDIURETIC HORMONE SECRETION [None]
  - HYPONATRAEMIA [None]
